FAERS Safety Report 21147747 (Version 1)
Quarter: 2022Q3

REPORT INFORMATION
  Report Type: Spontaneous
  Country: US (occurrence: None)
  Receive Date: 20220729
  Receipt Date: 20220729
  Transmission Date: 20221027
  Serious: Yes (Hospitalization)
  Sender: FDA-Public Use
  Company Number: None

PATIENT
  Age: 60 Year
  Sex: Female
  Weight: 59 kg

DRUGS (1)
  1. AMIVANTAMAB [Suspect]
     Active Substance: AMIVANTAMAB
     Indication: Non-small cell lung cancer
     Route: 042
     Dates: start: 20220516, end: 20220516

REACTIONS (7)
  - Infusion related reaction [None]
  - Nausea [None]
  - Dyspnoea [None]
  - Flushing [None]
  - Blood pressure decreased [None]
  - Heart rate increased [None]
  - Therapy interrupted [None]

NARRATIVE: CASE EVENT DATE: 20220516
